FAERS Safety Report 4913716-5 (Version None)
Quarter: 2006Q1

REPORT INFORMATION
  Report Type: 
  Country: None (occurrence: None)
  Receive Date: 20060210
  Receipt Date: 20060201
  Transmission Date: 20060701
  Serious: Yes (Death)
  Sender: FDA-Public Use
  Company Number: HQWYE630102FEB06

PATIENT

DRUGS (3)
  1. EFFEXOR XR [Suspect]
     Dosage: ^HIGH DOSE^ ORAL
     Route: 048
  2. EDRONAX (REBOXETINE) [Concomitant]
  3. AVANZA (MIRTAZAPINE) [Concomitant]

REACTIONS (1)
  - UNEVALUABLE EVENT [None]
